FAERS Safety Report 10630201 (Version 1)
Quarter: 2014Q4

REPORT INFORMATION
  Report Type: Spontaneous
  Country: US (occurrence: US)
  Receive Date: 20141205
  Receipt Date: 20141205
  Transmission Date: 20150529
  Serious: No
  Sender: FDA-Public Use
  Company Number: US-BRISTOL-MYERS SQUIBB COMPANY-21042007

PATIENT
  Age: 55 Year
  Sex: Male
  Weight: 115.64 kg

DRUGS (3)
  1. LISINOPRIL. [Concomitant]
     Active Substance: LISINOPRIL
  2. METFORMIN [Concomitant]
     Active Substance: METFORMIN HYDROCHLORIDE
     Dosage: 1DF=1000 UNITS NOS?2 TABS /DAY
  3. BYDUREON [Suspect]
     Active Substance: EXENATIDE
     Dosage: INJECTION?ONGOING
     Route: 058

REACTIONS (2)
  - Product quality issue [Unknown]
  - Underdose [Unknown]
